FAERS Safety Report 21798176 (Version 1)
Quarter: 2022Q4

REPORT INFORMATION
  Report Type: Spontaneous
  Country: US (occurrence: None)
  Receive Date: 20221229
  Receipt Date: 20221229
  Transmission Date: 20230112
  Serious: Yes (Hospitalization)
  Sender: FDA-Public Use
  Company Number: None

PATIENT
  Age: 75 Year
  Sex: Male
  Weight: 92.5 kg

DRUGS (2)
  1. AZACITIDINE [Suspect]
     Active Substance: AZACITIDINE
     Dates: end: 20221224
  2. VENETOCLAX [Suspect]
     Active Substance: VENETOCLAX
     Dates: end: 20221225

REACTIONS (5)
  - Dysuria [None]
  - Blood creatinine increased [None]
  - Bladder outlet obstruction [None]
  - Prostatomegaly [None]
  - Oedema [None]

NARRATIVE: CASE EVENT DATE: 20221225
